FAERS Safety Report 6802862-7 (Version None)
Quarter: 2010Q2

REPORT INFORMATION
  Report Type: 
  Country: None (occurrence: None)
  Receive Date: 20100628
  Receipt Date: 20100505
  Transmission Date: 20101027
  Serious: Yes (Hospitalization)
  Sender: FDA-Public Use
  Company Number: BR-SANOFI-AVENTIS-2010SA027122

PATIENT
  Age: 33 Year
  Sex: Female
  Weight: 72 kg

DRUGS (8)
  1. CLEXANE SYRINGES [Suspect]
     Indication: HIGH RISK PREGNANCY
     Route: 058
     Dates: start: 20100503, end: 20100601
  2. ASPIRIN [Concomitant]
     Indication: ANTICOAGULANT THERAPY
     Dates: start: 20100503, end: 20100601
  3. MULTI-VITAMINS [Concomitant]
     Dates: start: 20100503, end: 20100601
  4. UTROGESTAN [Concomitant]
     Dates: start: 20100503, end: 20100601
  5. MULTI-VITAMINS [Concomitant]
     Dates: start: 20100503, end: 20100601
  6. MULTI-VITAMINS [Concomitant]
     Dates: start: 20100503, end: 20100601
  7. CAPTOPRIL [Concomitant]
     Indication: PREGNANCY INDUCED HYPERTENSION
     Dates: start: 20090101
  8. HYDROCHLOROTHIAZIDE [Concomitant]
     Indication: PREGNANCY INDUCED HYPERTENSION
     Dates: start: 20090101

REACTIONS (4)
  - DRUG EXPOSURE DURING PREGNANCY [None]
  - INJECTION SITE PAIN [None]
  - OFF LABEL USE [None]
  - PREMATURE BABY [None]
